FAERS Safety Report 8445887-0 (Version None)
Quarter: 2012Q2

REPORT INFORMATION
  Report Type: 
  Country: None (occurrence: None)
  Receive Date: 20120618
  Receipt Date: 20120607
  Transmission Date: 20120825
  Serious: Yes (Other)
  Sender: FDA-Public Use
  Company Number: US-ASTRAZENECA-2012SE38559

PATIENT
  Age: 62 Year
  Sex: Female

DRUGS (15)
  1. SEROQUEL [Suspect]
     Route: 048
  2. ALENDRONATE SODIUM [Concomitant]
     Indication: OSTEOPOROSIS
     Route: 048
  3. TRILEPTAL [Concomitant]
  4. EFFEXOR XR [Concomitant]
     Route: 048
  5. CARVEDILOL [Concomitant]
     Indication: BLOOD PRESSURE ABNORMAL
     Route: 048
  6. NEXIUM [Suspect]
     Route: 048
  7. PROMETHAZINE HCL [Concomitant]
     Indication: NAUSEA
     Dosage: 1 EVERY 6 HOURS AS NEEDED
     Route: 048
  8. PROMETHAZINE HCL [Concomitant]
     Indication: VOMITING
     Dosage: 1 EVERY 6 HOURS AS NEEDED
     Route: 048
  9. PROVENTIL-HFA [Concomitant]
     Indication: DYSPNOEA
     Dosage: 2 PUFFS EVERY 4-6 HOURS AS NEEDED
  10. VOLTAREN [Concomitant]
     Indication: MUSCLE SPASMS
     Dosage: APPLY TO THE AFFECTED AREA QHS
  11. ABILIFY [Concomitant]
     Route: 048
  12. ADVAIR DISKUS 100/50 [Concomitant]
     Indication: LUNG DISORDER
     Dosage: 250-50MCG/DOSE, 1 INHALATION BID
     Route: 055
  13. ATROVENT [Concomitant]
     Dosage: 17 MCG/ACT, 2 PUFFS FOUR TIMES DAILY AS NEEDED
  14. KLONOPIN [Concomitant]
     Dosage: 1 MG TID PRN
  15. NORCO [Concomitant]
     Indication: BREAKTHROUGH PAIN
     Dosage: 7.5/325 MG BID-TID, PRN
     Route: 048

REACTIONS (20)
  - CHRONIC OBSTRUCTIVE PULMONARY DISEASE [None]
  - BRONCHITIS [None]
  - HALLUCINATION [None]
  - HYPERTENSION [None]
  - WEIGHT DECREASED [None]
  - NAUSEA [None]
  - FATIGUE [None]
  - SPINAL COLUMN STENOSIS [None]
  - OSTEOPOROSIS [None]
  - ABDOMINAL TENDERNESS [None]
  - VAGINAL DISCHARGE [None]
  - BACK PAIN [None]
  - VOMITING [None]
  - NERVOUSNESS [None]
  - ABDOMINAL PAIN [None]
  - OSTEOARTHRITIS [None]
  - CYSTITIS [None]
  - PRODUCTIVE COUGH [None]
  - DRUG HYPERSENSITIVITY [None]
  - POLLAKIURIA [None]
